FAERS Safety Report 6471000-5 (Version None)
Quarter: 2009Q4

REPORT INFORMATION
  Report Type: 
  Country: None (occurrence: None)
  Receive Date: 20091203
  Receipt Date: 20080331
  Transmission Date: 20100525
  Serious: Yes (Hospitalization)
  Sender: FDA-Public Use
  Company Number: JP-ELI_LILLY_AND_COMPANY-JP200801003339

PATIENT
  Sex: Male
  Weight: 49.5 kg

DRUGS (12)
  1. PEMETREXED [Suspect]
     Indication: PLEURAL MESOTHELIOMA MALIGNANT
     Dosage: 750 MG, OTHER
     Route: 042
     Dates: start: 20071218
  2. CISPLATIN [Suspect]
     Indication: PLEURAL MESOTHELIOMA MALIGNANT
     Dosage: 110 MG, OTHER
     Route: 042
     Dates: start: 20071218, end: 20071218
  3. CISPLATIN [Suspect]
     Dosage: 110 MG, OTHER
     Route: 042
     Dates: start: 20080116
  4. PANVITAN [Concomitant]
     Dosage: 1 G, DAILY (1/D)
     Route: 048
     Dates: start: 20071216
  5. METHYCOBAL [Concomitant]
     Dosage: 1 MG, OTHER
     Route: 030
     Dates: start: 20071210, end: 20071210
  6. OPSO [Concomitant]
     Indication: CANCER PAIN
     Dosage: 5 MG, AS NEEDED
     Route: 048
     Dates: start: 20071122
  7. NOVAMIN [Concomitant]
     Indication: NAUSEA
     Dosage: 15 MG, DAILY (1/D)
     Route: 048
     Dates: start: 20071122, end: 20080206
  8. GASTER D [Concomitant]
     Indication: NAUSEA
     Dosage: 40 MG, DAILY (1/D)
     Route: 048
     Dates: start: 20071122
  9. MS CONTIN [Concomitant]
     Indication: CANCER PAIN
     Dosage: 40 MG, DAILY (1/D)
     Route: 048
     Dates: start: 20071130, end: 20071225
  10. KYTRIL [Concomitant]
     Indication: PROPHYLAXIS
     Dosage: 3 MG, OTHER
     Route: 042
     Dates: start: 20071218, end: 20071218
  11. DEXART [Concomitant]
     Indication: PROPHYLAXIS
     Dosage: 24 MG, OTHER
     Route: 042
     Dates: start: 20071218, end: 20071218
  12. DUROTEP [Concomitant]
     Indication: CANCER PAIN
     Dosage: 2.5 MG, EVERY THREE DAYS
     Route: 062
     Dates: start: 20071225, end: 20080115

REACTIONS (3)
  - DECREASED APPETITE [None]
  - ILEUS PARALYTIC [None]
  - VOMITING [None]
